FAERS Safety Report 5027519-7 (Version None)
Quarter: 2006Q2

REPORT INFORMATION
  Report Type: 
  Country: None (occurrence: None)
  Receive Date: 20060515
  Receipt Date: 20060213
  Transmission Date: 20061013
  Serious: No
  Sender: FDA-Public Use
  Company Number: S06-USA-00543-01

PATIENT
  Age: 83 Year
  Sex: Male

DRUGS (2)
  1. NAMENDA [Suspect]
     Indication: DEMENTIA
     Dosage: 5 MG QD PO
     Route: 048
     Dates: start: 20060210
  2. MANY MEDICATIONS (NOS) [Concomitant]

REACTIONS (2)
  - COLD SWEAT [None]
  - HYPERHIDROSIS [None]
